FAERS Safety Report 9354263 (Version 2)
Quarter: 2013Q2

REPORT INFORMATION
  Report Type: Report from Study
  Country: DE (occurrence: DE)
  Receive Date: 20130618
  Receipt Date: 20130620
  Transmission Date: 20140414
  Serious: Yes (Hospitalization)
  Sender: FDA-Public Use
  Company Number: DE-TEVA-411718ISR

PATIENT
  Age: 70 Year
  Sex: Female

DRUGS (6)
  1. PACLITAXEL [Suspect]
     Indication: OVARIAN EPITHELIAL CANCER
     Dosage: 332.5 MILLIGRAM DAILY; LAST DOSE PRIOR TO SAE: 22-JAN-2013 (332.5MG)
     Route: 042
     Dates: start: 20121010, end: 20130213
  2. PACLITAXEL [Suspect]
     Route: 042
     Dates: start: 20130415
  3. CARBOPLATIN [Suspect]
     Indication: OVARIAN EPITHELIAL CANCER
     Dosage: 533.55 MILLIGRAM DAILY; LAST DOSE PRIOR TO SAE: 22-JAN-2013 (533.55MG)
     Route: 042
     Dates: start: 20121010, end: 20130213
  4. CARBOPLATIN [Suspect]
     Route: 042
     Dates: start: 20130415
  5. BEVACIZUMAB [Suspect]
     Indication: OVARIAN EPITHELIAL CANCER
     Dosage: 800 MILLIGRAM DAILY; LAST DOSE PRIOR TO SAE: 12-FEB-2013 (800MG)
     Route: 042
     Dates: start: 20121010, end: 20130213
  6. BEVACIZUMAB [Suspect]
     Route: 042
     Dates: start: 20130415

REACTIONS (1)
  - Oral cavity fistula [Not Recovered/Not Resolved]
